FAERS Safety Report 10102565 (Version 2)
Quarter: 2014Q2

REPORT INFORMATION
  Report Type: Other
  Country: None (occurrence: US)
  Receive Date: 20140424
  Receipt Date: 20140627
  Transmission Date: 20141212
  Serious: Yes (Death, Other)
  Sender: FDA-Public Use
  Company Number: US-GSKPPD-2014GSK000233

PATIENT
  Age: 57 Year
  Sex: Male

DRUGS (5)
  1. AVANDIA [Suspect]
     Indication: DIABETES MELLITUS
     Route: 048
     Dates: start: 20030616, end: 20060303
  2. AVANDAMET [Suspect]
     Indication: DIABETES MELLITUS
     Dosage: 4MG/1000MG
     Route: 048
     Dates: start: 20040422
  3. GEMFIBROZIL [Concomitant]
     Route: 048
  4. ASPIRIN [Concomitant]
     Route: 048
  5. MOEXIPRIL [Concomitant]
     Route: 048

REACTIONS (2)
  - Myocardial infarction [Not Recovered/Not Resolved]
  - Cardiac arrest [Fatal]
